FAERS Safety Report 5325234-3 (Version None)
Quarter: 2007Q2

REPORT INFORMATION
  Report Type: 
  Country: None (occurrence: None)
  Receive Date: 20070515
  Receipt Date: 20070505
  Transmission Date: 20071010
  Serious: Yes (Hospitalization)
  Sender: FDA-Public Use
  Company Number: US-ROCHE-496388

PATIENT
  Age: 60 Year
  Sex: Female

DRUGS (4)
  1. XENICAL [Suspect]
     Indication: DRUG USE FOR UNKNOWN INDICATION
     Route: 065
     Dates: start: 20070401
  2. UNSPECIFIED DRUG [Concomitant]
     Dosage: REPORTED AS A BLOOD PRESSURE PILL
  3. TOPROL-XL [Concomitant]
  4. LASIX [Concomitant]

REACTIONS (3)
  - DIZZINESS [None]
  - GASTROINTESTINAL INFECTION [None]
  - WEIGHT DECREASED [None]
